FAERS Safety Report 9892796 (Version 1)
Quarter: 2014Q1

REPORT INFORMATION
  Report Type: Spontaneous
  Country: DE (occurrence: DE)
  Receive Date: 20140212
  Receipt Date: 20140212
  Transmission Date: 20141002
  Serious: Yes (Hospitalization)
  Sender: FDA-Public Use
  Company Number: DE-CELGENEUS-062-21660-14014972

PATIENT
  Age: 41 Year
  Sex: Female

DRUGS (9)
  1. ABRAXANE [Suspect]
     Indication: BREAST CANCER
     Route: 041
     Dates: start: 20130729
  2. TRASTUZUMAB [Suspect]
     Indication: BREAST CANCER
     Dosage: 8 MILLIGRAM/KILOGRAM
     Route: 041
     Dates: start: 20130730, end: 20130730
  3. TRASTUZUMAB [Suspect]
     Route: 041
     Dates: start: 20130820
  4. PERTUZUMAB [Suspect]
     Indication: BREAST CANCER
     Route: 041
     Dates: start: 20130730, end: 20130730
  5. PERTUZUMAB [Suspect]
     Route: 041
     Dates: start: 20130820
  6. TILIDIN [Concomitant]
     Indication: PRODUCT USED FOR UNKNOWN INDICATION
     Route: 065
     Dates: start: 20121115
  7. GABAPENTIN [Concomitant]
     Indication: PRODUCT USED FOR UNKNOWN INDICATION
     Dosage: 90 MILLIGRAM
     Route: 065
     Dates: start: 20121115
  8. ENOXAPARIN SODIUM [Concomitant]
     Indication: PRODUCT USED FOR UNKNOWN INDICATION
     Route: 065
     Dates: start: 20130729
  9. AMOXICILLIN TRIHYDRATE/CLAVULANATE POTASSIUM [Concomitant]
     Indication: PRODUCT USED FOR UNKNOWN INDICATION
     Dosage: 875/125
     Route: 065
     Dates: start: 20130927

REACTIONS (2)
  - Device related infection [Recovered/Resolved]
  - Device related infection [Recovered/Resolved]
